FAERS Safety Report 20834361 (Version 1)
Quarter: 2022Q2

REPORT INFORMATION
  Report Type: 
  Country: None (occurrence: None)
  Receive Date: 20220516
  Receipt Date: 20220516
  Transmission Date: 20220721
  Serious: No
  Sender: FDA-Public Use
  Company Number: US-ROCHE-3093712

PATIENT

DRUGS (8)
  1. RITUXIMAB [Suspect]
     Active Substance: RITUXIMAB
     Dosage: ANOTHER DOSE OF RITUXIMAB 100 MG/M^2 X 4 DOSES
  2. RITUXIMAB [Suspect]
     Active Substance: RITUXIMAB
     Dosage: SECOND DOSE OF RITUXIMAB ON 09/FEB/2021?THIRD DOSE OF RITUXIMAB ON /FEB/2021?FOURTH DOSE AND FIFTH D
     Dates: start: 2021
  3. PREDNISONE [Concomitant]
     Active Substance: PREDNISONE
     Dates: start: 20210126, end: 20210209
  4. PREDNISONE [Concomitant]
     Active Substance: PREDNISONE
     Dosage: WITH DOSE TAPER
     Dates: start: 202102
  5. ROMIPLOSTIM [Concomitant]
     Active Substance: ROMIPLOSTIM
     Dates: start: 2021
  6. MYCOPHENOLATE MOFETIL [Concomitant]
     Active Substance: MYCOPHENOLATE MOFETIL
     Dates: start: 202103, end: 202104
  7. SIROLIMUS [Concomitant]
     Active Substance: SIROLIMUS
     Dates: start: 202104
  8. MORPHINE [Concomitant]
     Active Substance: MORPHINE

REACTIONS (5)
  - Acute respiratory distress syndrome [None]
  - Serum sickness [None]
  - Neutralising antibodies positive [None]
  - Bronchospasm [None]
  - Refractoriness to platelet transfusion [None]
